FAERS Safety Report 21716313 (Version 1)
Quarter: 2022Q4

REPORT INFORMATION
  Report Type: Other
  Country: US (occurrence: US)
  Receive Date: 20221212
  Receipt Date: 20221212
  Transmission Date: 20230113
  Serious: No
  Sender: FDA-Public Use
  Company Number: US-GBT-014324

PATIENT
  Sex: Female

DRUGS (6)
  1. OXBRYTA [Suspect]
     Active Substance: VOXELOTOR
     Indication: Sickle cell disease
     Route: 048
  2. MORPHINE [Concomitant]
     Active Substance: MORPHINE
  3. BACLOFEN [Concomitant]
     Active Substance: BACLOFEN
  4. SUMATRIPTAN [Concomitant]
     Active Substance: SUMATRIPTAN
  5. FOLIC ACID [Concomitant]
     Active Substance: FOLIC ACID
  6. PHENERGAN [Concomitant]
     Active Substance: PROMETHAZINE HYDROCHLORIDE

REACTIONS (3)
  - Migraine [Unknown]
  - Gastric disorder [Unknown]
  - Therapy cessation [Unknown]
